FAERS Safety Report 8193104-1 (Version None)
Quarter: 2012Q1

REPORT INFORMATION
  Report Type: 
  Country: None (occurrence: None)
  Receive Date: 20120308
  Receipt Date: 20120308
  Transmission Date: 20120608
  Serious: Yes (Other)
  Sender: FDA-Public Use
  Company Number: None

PATIENT
  Sex: Female

DRUGS (1)
  1. CLINDAMYCIN [Suspect]
     Indication: ENDODONTIC PROCEDURE
     Dosage: 1 TABLET
     Route: 048
     Dates: start: 20111212, end: 20111219

REACTIONS (2)
  - MUSCLE SPASMS [None]
  - DIARRHOEA HAEMORRHAGIC [None]
